FAERS Safety Report 8179744-4 (Version None)
Quarter: 2012Q1

REPORT INFORMATION
  Report Type: 
  Country: None (occurrence: None)
  Receive Date: 20120302
  Receipt Date: 20120222
  Transmission Date: 20120608
  Serious: Yes (Hospitalization, Disabling, Other)
  Sender: FDA-Public Use
  Company Number: US-BAYER-2011-090605

PATIENT
  Age: 44 Year
  Sex: Female
  Weight: 113 kg

DRUGS (14)
  1. YASMIN [Suspect]
     Dosage: UNK
     Route: 048
     Dates: start: 20050501, end: 20090915
  2. CRESTOR [Concomitant]
  3. CYMBALTA [Concomitant]
  4. CLONAZEPAM [Concomitant]
  5. CELEXA [Concomitant]
  6. CALCIUM VIT D [Concomitant]
  7. OMEPRAZOLE [Concomitant]
  8. ZITHROMAX [Concomitant]
  9. PREDNISOLONE [Concomitant]
  10. PRILOSEC [Concomitant]
  11. CYTOXAN [Concomitant]
  12. FOSAMAX [Concomitant]
  13. MEVACOR [Concomitant]
  14. IBUPROFEN [Concomitant]

REACTIONS (8)
  - GENERAL PHYSICAL HEALTH DETERIORATION [None]
  - DEEP VEIN THROMBOSIS [None]
  - PAIN [None]
  - EMOTIONAL DISTRESS [None]
  - INJURY [None]
  - QUALITY OF LIFE DECREASED [None]
  - ANXIETY [None]
  - PULMONARY EMBOLISM [None]
